FAERS Safety Report 17648769 (Version 8)
Quarter: 2020Q2

REPORT INFORMATION
  Report Type: Spontaneous
  Country: ES (occurrence: ES)
  Receive Date: 20200409
  Receipt Date: 20200613
  Transmission Date: 20200713
  Serious: Yes (Hospitalization)
  Sender: FDA-Public Use
  Company Number: ES-ASTRAZENECA-2020SE46822

PATIENT
  Age: 46 Year
  Sex: Female
  Weight: 63.6 kg

DRUGS (31)
  1. ANTIHISTAMINICO [Suspect]
     Active Substance: CHLORPHENIRAMINE MALEATE
     Indication: PRODUCT USED FOR UNKNOWN INDICATION
     Dosage: UNKNOWN
     Route: 065
     Dates: start: 20200128
  2. METAMIZOLE [Suspect]
     Active Substance: METAMIZOLE
     Indication: ABDOMINAL PAIN UPPER
     Dosage: UNKNOWN
     Route: 030
  3. IXIA [Suspect]
     Active Substance: OLMESARTAN MEDOXOMIL
     Indication: PRODUCT USED FOR UNKNOWN INDICATION
     Dosage: UNKNOWN
     Route: 065
     Dates: start: 20190114
  4. PARACETAMOL [Suspect]
     Active Substance: ACETAMINOPHEN
     Indication: PRODUCT USED FOR UNKNOWN INDICATION
     Dosage: 1G / EVERY 8H
     Route: 065
     Dates: start: 201912
  5. TRAMADOL HYDROCHLORIDE. [Suspect]
     Active Substance: TRAMADOL HYDROCHLORIDE
     Indication: INFLUENZA
     Dosage: UNKNOWN
     Route: 065
  6. TRAMADOL HYDROCHLORIDE. [Suspect]
     Active Substance: TRAMADOL HYDROCHLORIDE
     Indication: PRODUCT USED FOR UNKNOWN INDICATION
     Dosage: UNKNOWN
     Route: 065
     Dates: start: 201912
  7. JINARC [Suspect]
     Active Substance: TOLVAPTAN
     Indication: CONGENITAL CYSTIC KIDNEY DISEASE
     Route: 065
     Dates: start: 201903, end: 20200115
  8. CARDURAN [Suspect]
     Active Substance: DOXAZOSIN MESYLATE
     Indication: HYPERTENSION
     Dosage: RARELY TAKEN
     Route: 065
     Dates: start: 20180706
  9. PARACETAMOL [Suspect]
     Active Substance: ACETAMINOPHEN
     Indication: INFLUENZA
     Dosage: 1G / EVERY 8H
     Route: 065
     Dates: start: 201912
  10. PARACETAMOL [Suspect]
     Active Substance: ACETAMINOPHEN
     Indication: INFLUENZA
     Dosage: 1G / EVERY 8H (SEVERAL DAYS)
     Route: 065
     Dates: start: 20200128
  11. JINARC [Suspect]
     Active Substance: TOLVAPTAN
     Indication: CONGENITAL CYSTIC KIDNEY DISEASE
     Dosage: UNKNOWN
     Route: 065
     Dates: start: 201903, end: 20200115
  12. ROBAXIN [Suspect]
     Active Substance: METHOCARBAMOL
     Indication: MUSCLE SPASMS
     Dosage: TAKEN ON CERTAIN OCCASIONS
     Route: 065
     Dates: start: 20191122
  13. PARACETAMOL [Suspect]
     Active Substance: ACETAMINOPHEN
     Indication: ABDOMINAL PAIN UPPER
     Dosage: 1G / EVERY 8H (SEVERAL DAYS)
     Route: 065
     Dates: start: 20200128
  14. DIPYRONE [Suspect]
     Active Substance: DIPYRONE
     Indication: ABDOMINAL PAIN UPPER
     Route: 030
  15. ESOMEPRAZOLE. [Suspect]
     Active Substance: ESOMEPRAZOLE MAGNESIUM
     Indication: OESOPHAGITIS
     Dosage: SPORADICALLY TAKEN, ALTHOUGH IT WAS TAKEN IN THE LAST 48 H.
     Route: 048
     Dates: start: 20191216
  16. EBASTINE [Suspect]
     Active Substance: EBASTINE
     Indication: INFLUENZA
     Dosage: UNKNOWN
     Route: 065
     Dates: start: 20191216
  17. EBASTINE [Suspect]
     Active Substance: EBASTINE
     Indication: INFLUENZA
     Dosage: UNKNOWN
     Route: 065
     Dates: start: 20200210
  18. METAMIZOLE [Suspect]
     Active Substance: METAMIZOLE
     Indication: PRODUCT USED FOR UNKNOWN INDICATION
     Dosage: UNKNOWN
     Route: 030
  19. MAXALT [Suspect]
     Active Substance: RIZATRIPTAN BENZOATE
     Indication: PRODUCT USED FOR UNKNOWN INDICATION
     Dosage: RARELY TAKEN
     Route: 065
     Dates: start: 20180706
  20. ESOMEPRAZOLE. [Suspect]
     Active Substance: ESOMEPRAZOLE MAGNESIUM
     Indication: OESOPHAGITIS
     Dosage: SPORADICALLY TAKEN, ALTHOUGH IT WAS TAKEN IN THE LAST 48 H.
     Route: 048
     Dates: start: 20200210
  21. PARACETAMOL [Suspect]
     Active Substance: ACETAMINOPHEN
     Indication: PRODUCT USED FOR UNKNOWN INDICATION
     Dosage: 1G / EVERY 8H (SEVERAL DAYS)
     Route: 065
     Dates: start: 20200128
  22. TRAMADOL HYDROCHLORIDE. [Suspect]
     Active Substance: TRAMADOL HYDROCHLORIDE
     Indication: INFLUENZA
     Dosage: UNKNOWN
     Route: 065
     Dates: start: 201912
  23. PARACETAMOL [Suspect]
     Active Substance: ACETAMINOPHEN
     Indication: PYREXIA
     Dosage: 1G / EVERY 8H (SEVERAL DAYS)
     Route: 065
     Dates: start: 20200128
  24. TRAMADOL HYDROCHLORIDE. [Suspect]
     Active Substance: TRAMADOL HYDROCHLORIDE
     Indication: PRODUCT USED FOR UNKNOWN INDICATION
     Dosage: UNKNOWN
     Route: 065
  25. REDOXON (ASCORBIC ACID) [Suspect]
     Active Substance: ASCORBIC ACID
     Indication: PRODUCT USED FOR UNKNOWN INDICATION
     Dosage: UNKNOWN (FOR 1 DAY)
     Route: 065
     Dates: start: 20200128
  26. FORTASEC [Suspect]
     Active Substance: LOPERAMIDE HYDROCHLORIDE
     Indication: DIARRHOEA
     Dosage: UNKNOWN
     Route: 065
     Dates: start: 20200128
  27. METAMIZOLE [Suspect]
     Active Substance: METAMIZOLE
     Indication: PYREXIA
     Dosage: UNKNOWN
     Route: 030
  28. PARACETAMOL [Suspect]
     Active Substance: ACETAMINOPHEN
     Indication: ABDOMINAL PAIN UPPER
     Dosage: 1G / EVERY 8H
     Route: 065
     Dates: start: 201912
  29. PARACETAMOL [Suspect]
     Active Substance: ACETAMINOPHEN
     Indication: PYREXIA
     Dosage: 1G / EVERY 8H
     Route: 065
     Dates: start: 201912
  30. DIPYRONE [Suspect]
     Active Substance: DIPYRONE
     Indication: PRODUCT USED FOR UNKNOWN INDICATION
     Route: 030
  31. DIPYRONE [Suspect]
     Active Substance: DIPYRONE
     Indication: PYREXIA
     Route: 030

REACTIONS (13)
  - Aspartate aminotransferase increased [Recovered/Resolved]
  - Oesophagitis [Recovered/Resolved]
  - Gallbladder polyp [Unknown]
  - Muscle spasms [Recovered/Resolved]
  - Cough [Recovered/Resolved]
  - Pyrexia [Recovered/Resolved]
  - Liver disorder [Recovered/Resolved]
  - Diarrhoea [Recovered/Resolved]
  - Alanine aminotransferase increased [Recovered/Resolved]
  - Influenza [Recovered/Resolved]
  - Rhinorrhoea [Recovered/Resolved]
  - Vomiting [Recovered/Resolved]
  - Abdominal pain upper [Recovered/Resolved]

NARRATIVE: CASE EVENT DATE: 20191122
